FAERS Safety Report 5170537-9 (Version None)
Quarter: 2006Q4

REPORT INFORMATION
  Report Type: 
  Country: None (occurrence: None)
  Receive Date: 20061201
  Receipt Date: 20061120
  Transmission Date: 20070319
  Serious: Yes (Life-Threatening, Hospitalization, Other)
  Sender: FDA-Public Use
  Company Number: 2006120795

PATIENT
  Age: 29 Year
  Sex: Male

DRUGS (1)
  1. ATARAX [Suspect]
     Indication: DERMATITIS ATOPIC
     Dosage: ORAL
     Route: 048
     Dates: start: 20060927, end: 20060927

REACTIONS (3)
  - ANAPHYLACTIC REACTION [None]
  - RHINORRHOEA [None]
  - SALIVARY HYPERSECRETION [None]
